FAERS Safety Report 24933010 (Version 2)
Quarter: 2025Q1

REPORT INFORMATION
  Report Type: Spontaneous
  Country: GR (occurrence: GR)
  Receive Date: 20250206
  Receipt Date: 20250304
  Transmission Date: 20250408
  Serious: No
  Sender: NOVARTIS
  Company Number: GR-002147023-NVSC2025GR008664

PATIENT
  Age: 67 Year
  Sex: Female

DRUGS (1)
  1. COSENTYX [Suspect]
     Active Substance: SECUKINUMAB
     Indication: Hidradenitis
     Dosage: 300 MG, QMO
     Route: 058
     Dates: start: 20241209

REACTIONS (2)
  - Escherichia urinary tract infection [Recovered/Resolved]
  - Pyrexia [Recovered/Resolved]

NARRATIVE: CASE EVENT DATE: 20241220
